FAERS Safety Report 7340611-7 (Version None)
Quarter: 2011Q1

REPORT INFORMATION
  Report Type: 
  Country: None (occurrence: None)
  Receive Date: 20110309
  Receipt Date: 20110302
  Transmission Date: 20110831
  Serious: Yes (Other)
  Sender: FDA-Public Use
  Company Number: JP-JNJFOC-20110206833

PATIENT

DRUGS (2)
  1. RISPERDAL [Suspect]
     Indication: PRODUCT USED FOR UNKNOWN INDICATION
     Route: 048
  2. RISPERDAL [Suspect]
     Dosage: BEFORE BEDTIME
     Route: 048

REACTIONS (5)
  - DRUG PRESCRIBING ERROR [None]
  - NEGATIVISM [None]
  - TREATMENT NONCOMPLIANCE [None]
  - AGGRESSION [None]
  - SOMNOLENCE [None]
